FAERS Safety Report 9233584 (Version 1)
Quarter: 2013Q2

REPORT INFORMATION
  Report Type: Spontaneous
  Country: US (occurrence: US)
  Receive Date: 20130416
  Receipt Date: 20130416
  Transmission Date: 20140414
  Serious: No
  Sender: FDA-Public Use
  Company Number: US-BANPHARM-20120412

PATIENT
  Age: 51 Year
  Sex: Female
  Weight: 48.07 kg

DRUGS (1)
  1. NAPROXEN SODIUM 220MG [Suspect]
     Indication: HEADACHE
     Dosage: SINGLE,
     Route: 048
     Dates: start: 20121123, end: 20121123

REACTIONS (2)
  - Local swelling [Unknown]
  - Abdominal pain upper [Unknown]
